FAERS Safety Report 7821245-4 (Version None)
Quarter: 2011Q4

REPORT INFORMATION
  Report Type: 
  Country: None (occurrence: None)
  Receive Date: 20111018
  Receipt Date: 20111007
  Transmission Date: 20120403
  Serious: No
  Sender: FDA-Public Use
  Company Number: US-NOVOPROD-335714

PATIENT

DRUGS (6)
  1. GLIPIZIDE [Concomitant]
     Indication: TYPE 2 DIABETES MELLITUS
     Dosage: 2.5 MG, QD
     Route: 048
     Dates: start: 20110707
  2. METFORMIN HCL [Concomitant]
     Indication: TYPE 2 DIABETES MELLITUS
     Dosage: 2000 MG, QD
     Route: 048
     Dates: start: 20000501
  3. FLUTICASONE PROPIONATE [Concomitant]
     Indication: BRONCHIAL HYPERREACTIVITY
     Dosage: 100 UG, QD
     Route: 055
     Dates: start: 20100601
  4. LIRAGLUTIDE FLEXPEN [Suspect]
     Dosage: 0.6 MG, QD
     Route: 058
     Dates: start: 20110918
  5. QVAR 40 [Concomitant]
     Indication: BRONCHIAL HYPERREACTIVITY
     Dosage: 320 MG, QD
     Route: 055
     Dates: start: 20100601
  6. LIRAGLUTIDE FLEXPEN [Suspect]
     Indication: OBESITY
     Dosage: 3.0 MG, QD
     Route: 058
     Dates: start: 20110628, end: 20110918

REACTIONS (2)
  - INJECTION SITE REACTION [None]
  - PRURITUS GENERALISED [None]
